FAERS Safety Report 5369442-4 (Version None)
Quarter: 2007Q2

REPORT INFORMATION
  Report Type: 
  Country: None (occurrence: None)
  Receive Date: 20070625
  Receipt Date: 20070620
  Transmission Date: 20071010
  Serious: Yes (Hospitalization)
  Sender: FDA-Public Use
  Company Number: US-ELI_LILLY_AND_COMPANY-US200703002019

PATIENT
  Age: 27 Year
  Sex: Female
  Weight: 115.19 kg

DRUGS (14)
  1. ZYPREXA [Suspect]
     Dosage: 2.5 MG, UNK
     Dates: start: 19991109, end: 20061129
  2. ZYPREXA [Suspect]
     Dosage: 20 MG, UNK
  3. ABILIFY [Concomitant]
     Dates: start: 20050301, end: 20050705
  4. QUETIAPINE [Concomitant]
     Dates: start: 20010501, end: 20060419
  5. RISPERIDONE [Concomitant]
     Dates: start: 20000814, end: 20000820
  6. RISPERIDONE [Concomitant]
     Dates: start: 20051011, end: 20060419
  7. GEODON [Concomitant]
     Dates: start: 20050514
  8. DEPAKOTE [Concomitant]
     Dates: start: 19991123
  9. LITHIUM CARBONATE [Concomitant]
     Dates: start: 20000822
  10. DOXEPIN HCL [Concomitant]
     Dates: start: 20050121
  11. MIRTAZAPINE [Concomitant]
     Dates: start: 20011019, end: 20020822
  12. PAXIL [Concomitant]
     Dates: start: 20030214
  13. SERTRALINE [Concomitant]
     Dates: start: 20000929, end: 20050601
  14. ATENOLOL [Concomitant]
     Dates: start: 20001020

REACTIONS (6)
  - DIABETES MELLITUS NON-INSULIN-DEPENDENT [None]
  - GALLBLADDER OPERATION [None]
  - HYPERGLYCAEMIA [None]
  - HYPERTENSION [None]
  - METABOLIC DISORDER [None]
  - OBESITY [None]
